FAERS Safety Report 24797103 (Version 9)
Quarter: 2025Q3

REPORT INFORMATION
  Report Type: Spontaneous
  Country: US (occurrence: US)
  Receive Date: 20250101
  Receipt Date: 20250910
  Transmission Date: 20251021
  Serious: No
  Sender: BLUEPRINT MEDICINES
  Company Number: US-Blueprint Medicines Corporation-2024-AER-00014

PATIENT
  Age: 72 Year
  Sex: Female

DRUGS (15)
  1. AYVAKIT [Suspect]
     Active Substance: AVAPRITINIB
     Indication: Gastrointestinal stromal tumour
     Dosage: 200MG ORALLY ON EVEN DAYS ALTERNATING
     Route: 048
     Dates: start: 20240909
  2. AYVAKIT [Suspect]
     Active Substance: AVAPRITINIB
     Dosage: 100MG ORALLY ON ODD DAYS ALTERNATING
     Route: 048
     Dates: start: 20240909
  3. AYVAKIT [Suspect]
     Active Substance: AVAPRITINIB
     Dosage: 200MG ORALLY ON EVEN DAYS ALTERNATING
     Route: 065
     Dates: start: 20240909
  4. AYVAKIT [Suspect]
     Active Substance: AVAPRITINIB
     Dosage: 100MG ORALLY ON ODD DAYS ALTERNATING
     Route: 065
     Dates: start: 20240909
  5. ATORVASTATIN [Concomitant]
     Active Substance: ATORVASTATIN
     Indication: Product used for unknown indication
     Route: 048
  6. LASIX [Concomitant]
     Active Substance: FUROSEMIDE
     Indication: Product used for unknown indication
     Route: 048
  7. METOCLOPRAMIDE [Concomitant]
     Active Substance: METOCLOPRAMIDE
     Indication: Product used for unknown indication
     Route: 065
  8. Multivitamin Adult [Concomitant]
     Indication: Product used for unknown indication
     Route: 065
  9. PANTOPRAZOLE [Concomitant]
     Active Substance: PANTOPRAZOLE
     Indication: Product used for unknown indication
     Route: 065
  10. PILOCARPINE [Concomitant]
     Active Substance: PILOCARPINE
     Indication: Product used for unknown indication
     Route: 065
  11. CALCIUM [Concomitant]
     Active Substance: CALCIUM
     Indication: Product used for unknown indication
     Route: 065
  12. CALCIUM\CHOLECALCIFEROL [Concomitant]
     Active Substance: CALCIUM\CHOLECALCIFEROL
     Indication: Product used for unknown indication
     Route: 048
  13. ATROPINE\DIPHENOXYLATE [Concomitant]
     Active Substance: ATROPINE\DIPHENOXYLATE
     Indication: Product used for unknown indication
     Route: 065
  14. LOPERAMIDE [Concomitant]
     Active Substance: LOPERAMIDE
     Indication: Product used for unknown indication
     Route: 065
  15. CREON [Concomitant]
     Active Substance: PANCRELIPASE AMYLASE\PANCRELIPASE LIPASE\PANCRELIPASE PROTEASE
     Indication: Product used for unknown indication
     Route: 065

REACTIONS (20)
  - Diarrhoea [Recovering/Resolving]
  - Decreased appetite [Recovering/Resolving]
  - Vomiting [Not Recovered/Not Resolved]
  - Photosensitivity reaction [Recovering/Resolving]
  - Hair colour changes [Unknown]
  - Swelling of eyelid [Recovering/Resolving]
  - Lacrimation increased [Recovering/Resolving]
  - Swelling face [Recovering/Resolving]
  - Rash [Recovering/Resolving]
  - Feeling cold [Recovering/Resolving]
  - Joint stiffness [Recovering/Resolving]
  - Hypoaesthesia [Recovering/Resolving]
  - Malaise [Not Recovered/Not Resolved]
  - Pruritus [Recovering/Resolving]
  - Asthenia [Recovering/Resolving]
  - Application site erythema [Recovering/Resolving]
  - Application site bruise [Recovering/Resolving]
  - Fatigue [Not Recovered/Not Resolved]
  - Nausea [Recovering/Resolving]
  - Dysphonia [Recovering/Resolving]
